FAERS Safety Report 5964115-9 (Version None)
Quarter: 2008Q4

REPORT INFORMATION
  Report Type: 
  Country: None (occurrence: None)
  Receive Date: 20081124
  Receipt Date: 20081118
  Transmission Date: 20090506
  Serious: Yes (Hospitalization, Other)
  Sender: FDA-Public Use
  Company Number: SE-ROXANE LABORATORIES, INC.-2008-RO-00241RO

PATIENT
  Age: 44 Year
  Sex: Male

DRUGS (12)
  1. CYCLOPHOSPHAMIDE [Suspect]
     Indication: WALDENSTROM'S MACROGLOBULINAEMIA
  2. FLUDARABINE PHOSPHATE [Suspect]
     Indication: WALDENSTROM'S MACROGLOBULINAEMIA
  3. RITUXIMAB [Suspect]
     Indication: WALDENSTROM'S MACROGLOBULINAEMIA
  4. PENICILLIN [Suspect]
     Indication: PNEUMONIA PNEUMOCOCCAL
  5. MEROPENEM [Suspect]
     Indication: PYREXIA
  6. MEROPENEM [Suspect]
     Indication: NEUTROPENIA
  7. DIURETICS [Suspect]
     Indication: PLEURAL EFFUSION
     Route: 048
  8. FUROSEMIDE [Concomitant]
     Indication: PULMONARY HYPERTENSION
     Route: 042
  9. FUROSEMIDE [Concomitant]
     Route: 048
  10. WARFARIN SODIUM [Concomitant]
  11. BOSENTAN [Concomitant]
  12. SPIRONOLACTONE [Concomitant]

REACTIONS (9)
  - BRAIN NATRIURETIC PEPTIDE INCREASED [None]
  - ELECTROCARDIOGRAM ABNORMAL [None]
  - ELECTROCARDIOGRAM LOW VOLTAGE [None]
  - HYPERHIDROSIS [None]
  - NAUSEA [None]
  - NEUTROPENIA [None]
  - PLEURAL EFFUSION [None]
  - PULMONARY HYPERTENSION [None]
  - PYREXIA [None]
